FAERS Safety Report 15924809 (Version 1)
Quarter: 2019Q1

REPORT INFORMATION
  Report Type: Spontaneous
  Country: US (occurrence: US)
  Receive Date: 20190206
  Receipt Date: 20190206
  Transmission Date: 20190417
  Serious: No
  Sender: FDA-Public Use
  Company Number: None

PATIENT
  Age: 4 Year
  Sex: Male
  Weight: 15.75 kg

DRUGS (1)
  1. TAMIFLU [Suspect]
     Active Substance: OSELTAMIVIR PHOSPHATE
     Indication: INFLUENZA A VIRUS TEST
     Dosage: QUANTITY:1 7.5 ML;?
     Route: 048
     Dates: start: 20190131, end: 20190202

REACTIONS (2)
  - Formication [None]
  - Abnormal behaviour [None]

NARRATIVE: CASE EVENT DATE: 20190202
